FAERS Safety Report 12596122 (Version 1)
Quarter: 2016Q3

REPORT INFORMATION
  Report Type: Report from Study
  Country: US (occurrence: US)
  Receive Date: 20160726
  Receipt Date: 20160726
  Transmission Date: 20161109
  Serious: No
  Sender: FDA-Public Use
  Company Number: US-AMGEN-USASL2016050874

PATIENT
  Age: 57 Year
  Sex: Female

DRUGS (23)
  1. PAXIL [Concomitant]
     Active Substance: PAROXETINE HYDROCHLORIDE
     Dosage: 20 MG, 1 AND 1/2 QD
  2. VITAMIN D                          /00107901/ [Concomitant]
     Active Substance: ERGOCALCIFEROL
     Dosage: 50000 IU, QWK
  3. ASPIRIN                            /00002701/ [Concomitant]
     Active Substance: ASPIRIN
     Dosage: 81 MG, QD
  4. MAG OXIDE [Concomitant]
     Active Substance: MAGNESIUM OXIDE
     Dosage: 400 MG, BID
  5. MULTIVITAMIN                       /00097801/ [Concomitant]
     Active Substance: VITAMINS
     Dosage: UNK
  6. FERROUS SULFATE. [Concomitant]
     Active Substance: FERROUS SULFATE
     Dosage: 325 MG, QD
  7. WELCHOL [Concomitant]
     Active Substance: COLESEVELAM HYDROCHLORIDE
     Dosage: 625 UNK, QD
  8. KYPROLIS [Suspect]
     Active Substance: CARFILZOMIB
     Indication: PLASMA CELL MYELOMA
     Dosage: 2 TIMES/WK
     Route: 065
     Dates: start: 20160418
  9. LENALIDOMIDE [Concomitant]
     Active Substance: LENALIDOMIDE
     Indication: PLASMA CELL MYELOMA
     Dosage: UNK
     Dates: start: 20160418
  10. COMPAZINE [Concomitant]
     Active Substance: PROCHLORPERAZINE MALEATE
     Indication: VOMITING
     Dosage: UNK
  11. CARAFATE [Concomitant]
     Active Substance: SUCRALFATE
     Dosage: UNK 10 CC BEFORE EACH MEAL AND BEFORE BEDTIME
  12. OMEPRAZOLE. [Concomitant]
     Active Substance: OMEPRAZOLE
     Dosage: 20 MG, QD
  13. COMPAZINE [Concomitant]
     Active Substance: PROCHLORPERAZINE MALEATE
     Indication: NAUSEA
  14. BUMEX [Concomitant]
     Active Substance: BUMETANIDE
     Dosage: 2 MG, QD
  15. AMLODIPINE [Concomitant]
     Active Substance: AMLODIPINE BESYLATE
     Dosage: 10 MG, QD
  16. LEVOTHYROXINE. [Concomitant]
     Active Substance: LEVOTHYROXINE
     Dosage: 50 MG, QD
  17. TAMOXIFEN [Concomitant]
     Active Substance: TAMOXIFEN
     Dosage: 10 MG, BID
  18. CALCIUM [Concomitant]
     Active Substance: CALCIUM
     Dosage: 600 MG, QD
  19. CRANBERRY                          /01512301/ [Concomitant]
     Active Substance: CRANBERRY
     Dosage: 500 MG, QD
  20. REVLIMID [Suspect]
     Active Substance: LENALIDOMIDE
     Indication: PRODUCT USED FOR UNKNOWN INDICATION
     Dosage: 10 MG FOR 21 DAYS THEN OFF 7 DAYS
     Route: 065
  21. DEXAMETHASONE. [Concomitant]
     Active Substance: DEXAMETHASONE
     Dosage: 4 MG, UNK, AFTER CHEMO TREATMENTS
  22. ACIDOPHILIS [Concomitant]
     Active Substance: LACTOBACILLUS ACIDOPHILUS
     Dosage: UNK UNK, QD
  23. KLOR-CON [Concomitant]
     Active Substance: POTASSIUM CHLORIDE
     Dosage: 20 MG, BID

REACTIONS (12)
  - Red blood cell count decreased [Unknown]
  - Insomnia [Unknown]
  - Gingival pain [Unknown]
  - Fatigue [Unknown]
  - White blood cell count decreased [Unknown]
  - Nervousness [Unknown]
  - Arthralgia [Unknown]
  - Nausea [Unknown]
  - Headache [Unknown]
  - Hot flush [Not Recovered/Not Resolved]
  - Vomiting [Unknown]
  - Malaise [Unknown]

NARRATIVE: CASE EVENT DATE: 2016
